FAERS Safety Report 15953078 (Version 2)
Quarter: 2019Q1

REPORT INFORMATION
  Report Type: Spontaneous
  Country: ES (occurrence: ES)
  Receive Date: 20190212
  Receipt Date: 20190226
  Transmission Date: 20190417
  Serious: Yes (Other)
  Sender: FDA-Public Use
  Company Number: ES-ASTRAZENECA-2019SE24277

PATIENT
  Sex: Female

DRUGS (4)
  1. ERLOTINIB [Concomitant]
     Active Substance: ERLOTINIB
  2. OSIMERTINIB. [Suspect]
     Active Substance: OSIMERTINIB
     Indication: GENE MUTATION
     Route: 048
     Dates: start: 2018
  3. BEVACIZUMAB. [Concomitant]
     Active Substance: BEVACIZUMAB
  4. OSIMERTINIB. [Suspect]
     Active Substance: OSIMERTINIB
     Indication: GENE MUTATION
     Route: 048

REACTIONS (1)
  - Nephropathy toxic [Unknown]

NARRATIVE: CASE EVENT DATE: 201812
